FAERS Safety Report 10414402 (Version 3)
Quarter: 2014Q4

REPORT INFORMATION
  Report Type: Spontaneous
  Country: AU (occurrence: AU)
  Receive Date: 20140828
  Receipt Date: 20141222
  Transmission Date: 20150528
  Serious: Yes (Other)
  Sender: FDA-Public Use
  Company Number: AU-AMGEN-AUSSP2014065264

PATIENT
  Sex: Female

DRUGS (6)
  1. ENBREL [Suspect]
     Active Substance: ETANERCEPT
     Indication: RHEUMATOID ARTHRITIS
     Dosage: 50 MG, UNK (INTERMITTENTLY)
     Route: 065
  2. AROPAX [Concomitant]
     Active Substance: PAROXETINE HYDROCHLORIDE
     Dosage: UNK
  3. ENBREL [Suspect]
     Active Substance: ETANERCEPT
     Dosage: 50 MG, UNK (INTERMITTENTLY)
     Route: 065
     Dates: start: 201408
  4. ENBREL [Suspect]
     Active Substance: ETANERCEPT
     Dosage: 25 MG, WEEKLY
     Route: 065
     Dates: start: 2014
  5. THYROXINE [Concomitant]
     Active Substance: LEVOTHYROXINE
     Dosage: UNK
  6. KARVEA [Concomitant]
     Active Substance: IRBESARTAN
     Dosage: UNK

REACTIONS (10)
  - Arthritis [Recovered/Resolved]
  - Malaise [Recovered/Resolved]
  - Herpes zoster [Recovered/Resolved]
  - Uterine polyp [Unknown]
  - Headache [Not Recovered/Not Resolved]
  - General physical health deterioration [Recovered/Resolved]
  - Cough [Unknown]
  - Influenza like illness [Recovered/Resolved]
  - Fatigue [Recovered/Resolved]
  - Influenza [Recovered/Resolved]
